FAERS Safety Report 8172496-3 (Version None)
Quarter: 2012Q1

REPORT INFORMATION
  Report Type: 
  Country: None (occurrence: None)
  Receive Date: 20120227
  Receipt Date: 20120227
  Transmission Date: 20120608
  Serious: Yes (Hospitalization)
  Sender: FDA-Public Use
  Company Number: None

PATIENT
  Age: 36 Year
  Sex: Female
  Weight: 84.2 kg

DRUGS (5)
  1. OXY-ELITE [Concomitant]
  2. ACETAMINOPHEN [Concomitant]
  3. DISULFIRAM [Suspect]
     Indication: ALCOHOL ABUSE
     Dosage: 500MG/DAY PO
     Route: 048
     Dates: end: 20110823
  4. FLONASE [Concomitant]
  5. HYDOXYCUT [Concomitant]

REACTIONS (9)
  - NAUSEA [None]
  - ABDOMINAL PAIN [None]
  - ARTHRALGIA [None]
  - JAUNDICE [None]
  - HEADACHE [None]
  - PYREXIA [None]
  - VOMITING [None]
  - MALAISE [None]
  - AMPHETAMINES POSITIVE [None]
